FAERS Safety Report 5671666-3 (Version None)
Quarter: 2008Q2

REPORT INFORMATION
  Report Type: 
  Country: None (occurrence: None)
  Receive Date: 20080227
  Receipt Date: 20070330
  Transmission Date: 20081010
  Serious: Yes (Other)
  Sender: FDA-Public Use
  Company Number: CHPA2007US04488

PATIENT
  Sex: Female

DRUGS (1)
  1. TRANSDERM SCOP [Suspect]
     Indication: SURGERY
     Dosage: 1.5 MG, ONCE/SINGLE, TRANSDERMAL
     Route: 062
     Dates: start: 20070326, end: 20070327

REACTIONS (5)
  - DIZZINESS [None]
  - DRY MOUTH [None]
  - NAUSEA [None]
  - VISION BLURRED [None]
  - VOMITING [None]
